FAERS Safety Report 14481818 (Version 2)
Quarter: 2018Q1

REPORT INFORMATION
  Report Type: Report from Study
  Country: US (occurrence: BR)
  Receive Date: 20180202
  Receipt Date: 20180306
  Transmission Date: 20180509
  Serious: Yes (Other)
  Sender: FDA-Public Use
  Company Number: US-SUNOVION-2018SUN000378

PATIENT
  Sex: Female
  Weight: 62 kg

DRUGS (2)
  1. ARADOIS H [Concomitant]
     Active Substance: HYDROCHLOROTHIAZIDE\LOSARTAN POTASSIUM
     Dosage: 12.5/50 MG, UNK
  2. INDACATEROL AND GLYCOPYRROLATE [Suspect]
     Active Substance: GLYCOPYRROLATE\INDACATEROL MALEATE
     Indication: DYSPNOEA
     Dosage: 1 DF (50 UG GLYCOPYRRONIUM, 110 UG INDACATEROL), QD
     Route: 055
     Dates: start: 20180114

REACTIONS (5)
  - Cough [Recovering/Resolving]
  - Throat irritation [Unknown]
  - Sputum discoloured [Recovering/Resolving]
  - Choking [Recovering/Resolving]
  - Product use in unapproved indication [Unknown]
